FAERS Safety Report 9201535 (Version 1)
Quarter: 2013Q2

REPORT INFORMATION
  Report Type: Spontaneous
  Country: US (occurrence: US)
  Receive Date: 20130401
  Receipt Date: 20130401
  Transmission Date: 20140414
  Serious: Yes (Other)
  Sender: FDA-Public Use
  Company Number: US-PFIZER INC-2013099110

PATIENT
  Age: 58 Year
  Sex: Male

DRUGS (5)
  1. EFFEXOR XR [Suspect]
     Indication: PAIN IN EXTREMITY
     Dosage: UNK
  2. EFFEXOR XR [Suspect]
     Indication: BACK PAIN
  3. NEURONTIN [Suspect]
     Indication: PAIN IN EXTREMITY
     Dosage: 100 MG, 3X/DAY
  4. NEURONTIN [Suspect]
     Indication: BACK PAIN
  5. EFFEXOR [Suspect]
     Dosage: 75 MG, 1X/DAY

REACTIONS (8)
  - Ligament disorder [Unknown]
  - Pain [Unknown]
  - Activities of daily living impaired [Unknown]
  - Arthralgia [Unknown]
  - Osteoarthritis [Unknown]
  - Dysstasia [Unknown]
  - Gait disturbance [Unknown]
  - Off label use [Unknown]
